FAERS Safety Report 8766678 (Version 1)
Quarter: 2012Q4

REPORT INFORMATION
  Report Type: 
  Country: US (occurrence: US)
  Receive Date: 20120904
  Receipt Date: 20120904
  Transmission Date: 20130627
  Serious: Yes (Other)
  Sender: FDA-Public Use
  Company Number: US-JNJFOC-20120813772

PATIENT
  Age: 68 Year
  Sex: Male
  Weight: 80.29 kg

DRUGS (1)
  1. NUCYNTA [Suspect]
     Indication: PAIN
     Dosage: 1every 8hours as needed
     Route: 048
     Dates: start: 20120828

REACTIONS (2)
  - Loss of consciousness [Recovered/Resolved]
  - Disorientation [Not Recovered/Not Resolved]
